APPROVED DRUG PRODUCT: JADENU SPRINKLE
Active Ingredient: DEFERASIROX
Strength: 360MG
Dosage Form/Route: GRANULE;ORAL
Application: N207968 | Product #003 | TE Code: AB
Applicant: NOVARTIS PHARMACEUTICALS CORP
Approved: May 18, 2017 | RLD: Yes | RS: Yes | Type: RX